FAERS Safety Report 19790224 (Version 1)
Quarter: 2021Q3

REPORT INFORMATION
  Report Type: Spontaneous
  Country: CN (occurrence: CN)
  Receive Date: 20210906
  Receipt Date: 20210906
  Transmission Date: 20211014
  Serious: Yes (Other)
  Sender: FDA-Public Use
  Company Number: CN-ROCHE-2904778

PATIENT
  Age: 51 Year
  Sex: Female

DRUGS (9)
  1. GEFITINIB. [Concomitant]
     Active Substance: GEFITINIB
     Indication: METASTASES TO CENTRAL NERVOUS SYSTEM
  2. PEMETREXED. [Concomitant]
     Active Substance: PEMETREXED
     Indication: LUNG NEOPLASM MALIGNANT
     Dosage: PEMETREXED + CARBOPLATIN FOR 4 CYCLES
  3. CARBOPLATIN. [Concomitant]
     Active Substance: CARBOPLATIN
     Indication: METASTASES TO CENTRAL NERVOUS SYSTEM
     Dosage: BEVACIZUMAB + PEMETREXED + CARBOPLATIN FOR 6 CYCLES
     Dates: start: 20200921
  4. AVASTIN [Suspect]
     Active Substance: BEVACIZUMAB
     Indication: LUNG NEOPLASM MALIGNANT
     Dosage: BEVACIZUMAB + PEMETREXED + CARBOPLATIN FOR 6 CYCLES
     Route: 065
     Dates: start: 20200921
  5. PEMETREXED. [Concomitant]
     Active Substance: PEMETREXED
     Dosage: BEVACIZUMAB + PEMETREXED FOR 11 CYCLES
     Dates: start: 20210131
  6. GEFITINIB. [Concomitant]
     Active Substance: GEFITINIB
     Indication: LUNG NEOPLASM MALIGNANT
     Route: 048
     Dates: start: 201910
  7. AVASTIN [Suspect]
     Active Substance: BEVACIZUMAB
     Indication: METASTASES TO CENTRAL NERVOUS SYSTEM
     Dosage: BEVACIZUMAB + PEMETREXED FOR 11 CYCLES
     Route: 065
     Dates: start: 20210131
  8. CARBOPLATIN. [Concomitant]
     Active Substance: CARBOPLATIN
     Indication: LUNG NEOPLASM MALIGNANT
     Dosage: PEMETREXED + CARBOPLATIN FOR 4 CYCLES
  9. PEMETREXED. [Concomitant]
     Active Substance: PEMETREXED
     Indication: METASTASES TO CENTRAL NERVOUS SYSTEM
     Dosage: BEVACIZUMAB + PEMETREXED + CARBOPLATIN FOR 6 CYCLES
     Dates: start: 20200921

REACTIONS (1)
  - Myelosuppression [Unknown]
